FAERS Safety Report 10923447 (Version 2)
Quarter: 2015Q2

REPORT INFORMATION
  Report Type: Spontaneous
  Country: US (occurrence: US)
  Receive Date: 20150318
  Receipt Date: 20150403
  Transmission Date: 20150821
  Serious: No
  Sender: FDA-Public Use
  Company Number: US-AMGEN-USASP2015023237

PATIENT
  Age: 58 Year
  Sex: Female
  Weight: 50.34 kg

DRUGS (9)
  1. ENBREL [Suspect]
     Active Substance: ETANERCEPT
     Indication: PSORIASIS
     Dosage: 50 MG, 2 TIMES/WK
     Route: 058
     Dates: start: 20150219
  2. VANIQA                             /00936001/ [Concomitant]
     Dosage: 13.9 %, BID
     Route: 061
  3. HALOG [Concomitant]
     Active Substance: HALCINONIDE
     Dosage: 0.1 %, APPLICATION APPLY ON THE SKIN DAILY
     Route: 061
  4. CYCLOSPORINE. [Concomitant]
     Active Substance: CYCLOSPORINE
     Dosage: 100 MG, BID
     Route: 048
  5. TRADJENTA [Concomitant]
     Active Substance: LINAGLIPTIN
     Dosage: 5 MG, UNK
  6. MOVIPREP                           /06224801/ [Concomitant]
     Dosage: 100G-7.5G -2.691G - 4.7G POWDER PACKET
     Route: 048
  7. PROGESTERONE MICRONIZED [Concomitant]
     Dosage: 100 MG, UNK
  8. APRISO [Concomitant]
     Active Substance: MESALAMINE
     Dosage: 0.375 G, UNK
  9. ESTRADIOL. [Concomitant]
     Active Substance: ESTRADIOL
     Dosage: 0.5 MG, UNK

REACTIONS (8)
  - Injection site induration [Recovered/Resolved]
  - Injection site swelling [Recovered/Resolved]
  - Back pain [Recovered/Resolved]
  - Injection site pruritus [Recovered/Resolved]
  - Psoriasis [Recovering/Resolving]
  - Arthralgia [Recovered/Resolved]
  - Injection site reaction [Recovered/Resolved]
  - Injection site erythema [Not Recovered/Not Resolved]

NARRATIVE: CASE EVENT DATE: 2015
